FAERS Safety Report 15057085 (Version 1)
Quarter: 2018Q2

REPORT INFORMATION
  Report Type: Spontaneous
  Country: US (occurrence: US)
  Receive Date: 20180604
  Receipt Date: 20180604
  Transmission Date: 20180711
  Serious: Yes (Life-Threatening, Hospitalization, Disabling, Other)
  Sender: FDA-Public Use
  Company Number: None

PATIENT
  Age: 30 Year
  Sex: Female
  Weight: 54 kg

DRUGS (19)
  1. CLONODINE [Concomitant]
     Active Substance: CLONIDINE
  2. COLLAGEN [Concomitant]
     Active Substance: COLLAGEN
  3. COQ10 [Concomitant]
     Active Substance: UBIDECARENONE
  4. FOLIC ACID. [Concomitant]
     Active Substance: FOLIC ACID
  5. LUTEIN [Concomitant]
     Active Substance: LUTEIN
  6. PROBIOTICS [Concomitant]
     Active Substance: PROBIOTICS NOS
  7. BUPROPION. [Suspect]
     Active Substance: BUPROPION
     Indication: DEPRESSION
     Dosage: ?          QUANTITY:1 DF DOSAGE FORM;?
     Route: 048
     Dates: start: 20180111, end: 20180203
  8. PREDNISOLONE FORTE [Concomitant]
  9. VITAMIN B12 [Concomitant]
     Active Substance: CYANOCOBALAMIN
  10. OMEGA-3 ACIDS [Concomitant]
     Active Substance: OMEGA-3 FATTY ACIDS
  11. BENADRYL [Concomitant]
     Active Substance: DIPHENHYDRAMINE HYDROCHLORIDE
  12. OFLOXACIN. [Concomitant]
     Active Substance: OFLOXACIN
  13. TRI-SPRINTEC [Concomitant]
     Active Substance: ETHINYL ESTRADIOL\NORGESTIMATE
  14. BIOTIN [Concomitant]
     Active Substance: BIOTIN
  15. ZEAXANTHIN [Concomitant]
     Active Substance: ZEAXANTHIN
  16. BOOST [Concomitant]
     Active Substance: DIETARY SUPPLEMENT
  17. ZYRTEC [Concomitant]
     Active Substance: CETIRIZINE HYDROCHLORIDE
  18. BLOOD SERUM TEARS [Concomitant]
  19. REFRESH MEGA-3 ARTIFICIAL TEARS [Concomitant]

REACTIONS (2)
  - Toxic epidermal necrolysis [None]
  - Visual impairment [None]

NARRATIVE: CASE EVENT DATE: 20180203
